FAERS Safety Report 9606655 (Version 1)
Quarter: 2013Q4

REPORT INFORMATION
  Report Type: Spontaneous
  Country: US (occurrence: US)
  Receive Date: 20131008
  Receipt Date: 20131008
  Transmission Date: 20140711
  Serious: Yes (Other)
  Sender: FDA-Public Use
  Company Number: US-AMGEN-USASP2013056656

PATIENT
  Sex: Female

DRUGS (5)
  1. PROLIA [Suspect]
     Indication: OSTEOPOROSIS POSTMENOPAUSAL
     Dosage: UNK UNK, Q6MO
     Route: 065
  2. DILANTIN                           /00017401/ [Concomitant]
  3. ISOLIN [Concomitant]
  4. LEVETIRACETAM [Concomitant]
  5. PROBIOTICS [Concomitant]
     Dosage: UNK UNK, QD

REACTIONS (8)
  - Anaemia [Recovered/Resolved]
  - Urinary tract infection [Recovered/Resolved]
  - Diarrhoea [Recovered/Resolved]
  - Dry eye [Recovered/Resolved]
  - Cough [Unknown]
  - Blood iron abnormal [Recovered/Resolved]
  - Constipation [Recovered/Resolved]
  - Rash [Recovered/Resolved]
